FAERS Safety Report 7500775-9 (Version None)
Quarter: 2011Q2

REPORT INFORMATION
  Report Type: 
  Country: None (occurrence: None)
  Receive Date: 20110524
  Receipt Date: 20110511
  Transmission Date: 20111010
  Serious: Yes (Hospitalization, Other)
  Sender: FDA-Public Use
  Company Number: PHHY2011JP41558

PATIENT
  Sex: Male

DRUGS (12)
  1. CANDESARTAN CILEXETIL [Concomitant]
     Indication: HYPERTENSION
     Dosage: 12 MG, UNK
     Route: 048
     Dates: start: 20110107, end: 20110505
  2. TORISEL [Concomitant]
     Indication: METASTATIC RENAL CELL CARCINOMA
     Dosage: 25 MG, UNK
     Route: 042
  3. MAGNESIUM SULFATE [Concomitant]
     Dosage: 750 MG, UNK
     Route: 048
     Dates: start: 20101228, end: 20110504
  4. FUROSEMIDE [Concomitant]
     Indication: HYPERURICAEMIA
     Dosage: 10 MG, UNK
     Route: 048
     Dates: start: 20101208, end: 20110505
  5. FERRUM [Concomitant]
     Dosage: 100 MG, UNK
     Route: 048
     Dates: start: 20100730, end: 20110505
  6. AFINITOR [Suspect]
     Indication: METASTATIC RENAL CELL CARCINOMA
     Dosage: 10 MG, DAILY
     Route: 048
     Dates: start: 20110325, end: 20110427
  7. TAMSULOSIN HYDROCHLORIDE [Concomitant]
     Indication: BENIGN PROSTATIC HYPERPLASIA
     Dosage: 0.2 MG, UNK
     Route: 048
     Dates: start: 20100730, end: 20110505
  8. OMEPRAZOLE [Concomitant]
     Indication: GASTRIC ULCER
     Dosage: 10 MG, UNK
     Route: 048
     Dates: start: 20100730, end: 20110505
  9. ALLELOCK [Concomitant]
     Dosage: 10 MG, UNK
     Route: 048
     Dates: start: 20101208, end: 20110505
  10. ALOSITOL [Concomitant]
     Dosage: 200 MG, UNK
     Route: 048
     Dates: start: 20100827, end: 20110421
  11. OXYCONTIN [Concomitant]
     Indication: METASTATIC RENAL CELL CARCINOMA
     Dosage: 20 MG, UNK
     Route: 048
     Dates: start: 20101112, end: 20110505
  12. CALBLOCK [Concomitant]
     Indication: HYPERTENSION
     Dosage: 16 MG, UNK
     Route: 048
     Dates: start: 20100730, end: 20110505

REACTIONS (5)
  - RESPIRATORY DISTRESS [None]
  - INTERSTITIAL LUNG DISEASE [None]
  - BLOOD GLUCOSE INCREASED [None]
  - PRODUCTIVE COUGH [None]
  - BLOOD LACTATE DEHYDROGENASE INCREASED [None]
